FAERS Safety Report 5510490-9 (Version None)
Quarter: 2007Q4

REPORT INFORMATION
  Report Type: 
  Country: None (occurrence: None)
  Receive Date: 20071030
  Receipt Date: 20070212
  Transmission Date: 20080405
  Serious: Yes (Hospitalization, Other)
  Sender: FDA-Public Use
  Company Number: HQWYE528113FEB07

PATIENT
  Age: 58 Year
  Sex: Female
  Weight: 132.2 kg

DRUGS (10)
  1. PREMARIN [Suspect]
     Indication: HORMONE REPLACEMENT THERAPY
     Dosage: ORAL
     Route: 048
     Dates: start: 19720101, end: 20061101
  2. SYNTHROID [Concomitant]
  3. MULTIVITAMINS, PLAIN (MULTIVITAMINS, PLAIN) [Concomitant]
  4. ASPIRIN [Concomitant]
  5. CALCIUM (CALCIUM) [Concomitant]
  6. GLUCOPHAGE [Concomitant]
  7. NEURONTIN [Concomitant]
  8. ALLEGRA-D (FEXOFENADINE HYDROCHLORIDE/PSEUDOEPHEDRINE HYDROCHLORIDE) [Concomitant]
  9. ADVAIR DISKUS 100/50 [Concomitant]
  10. CYMBALTA [Concomitant]

REACTIONS (1)
  - BREAST CANCER [None]
